FAERS Safety Report 10074323 (Version 1)
Quarter: 2014Q2

REPORT INFORMATION
  Report Type: Spontaneous
  Country: US (occurrence: US)
  Receive Date: 20140411
  Receipt Date: 20140411
  Transmission Date: 20141212
  Serious: No
  Sender: FDA-Public Use
  Company Number: US-SANOFI-AVENTIS-2013SA048729

PATIENT
  Age: 60 Year
  Sex: Male

DRUGS (3)
  1. ALLEGRA D [Suspect]
     Dosage: 60 MG/ 120 MG
     Route: 048
     Dates: start: 20130509
  2. DOXYCYCLINE MONOHYDRATE [Concomitant]
  3. BECLOMETHASONE DIPROPIONATE [Concomitant]
     Dates: start: 20130509

REACTIONS (4)
  - Prostatomegaly [Recovered/Resolved]
  - Pollakiuria [Recovered/Resolved]
  - Sleep disorder [Recovered/Resolved]
  - Anxiety [Recovered/Resolved]
